FAERS Safety Report 7538163-1 (Version None)
Quarter: 2011Q2

REPORT INFORMATION
  Report Type: 
  Country: None (occurrence: None)
  Receive Date: 20110609
  Receipt Date: 20010615
  Transmission Date: 20111010
  Serious: Yes (Death)
  Sender: FDA-Public Use
  Company Number: PHBS2001VE13571

PATIENT
  Age: 80 Year
  Sex: Female

DRUGS (1)
  1. STARLIX [Suspect]
     Dosage: 120 MG, UNK
     Dates: start: 20000101

REACTIONS (2)
  - CARDIAC ARREST [None]
  - RESPIRATORY FAILURE [None]
